FAERS Safety Report 10370662 (Version 1)
Quarter: 2014Q3

REPORT INFORMATION
  Report Type: Spontaneous
  Country: US (occurrence: US)
  Receive Date: 20140808
  Receipt Date: 20140808
  Transmission Date: 20150326
  Serious: Yes (Other)
  Sender: FDA-Public Use
  Company Number: US-JNJFOC-20140720614

PATIENT
  Age: 54 Year
  Sex: Female

DRUGS (1)
  1. PROPULSID [Suspect]
     Active Substance: CISAPRIDE
     Indication: HYPOMETABOLISM
     Route: 048

REACTIONS (6)
  - Ileus paralytic [Unknown]
  - Treatment noncompliance [Unknown]
  - Spondylolisthesis [Unknown]
  - Abdominal injury [Unknown]
  - Back injury [Unknown]
  - Fall [Unknown]

NARRATIVE: CASE EVENT DATE: 200906
